FAERS Safety Report 5040072-7 (Version None)
Quarter: 2006Q2

REPORT INFORMATION
  Report Type: 
  Country: None (occurrence: None)
  Receive Date: 20060630
  Receipt Date: 20060621
  Transmission Date: 20061013
  Serious: Yes (Hospitalization)
  Sender: FDA-Public Use
  Company Number: US-JNJFOC-20060504579

PATIENT
  Sex: Female
  Weight: 73.48 kg

DRUGS (11)
  1. REMICADE [Suspect]
     Route: 042
  2. REMICADE [Suspect]
     Route: 042
  3. REMICADE [Suspect]
     Route: 042
  4. REMICADE [Suspect]
     Route: 042
  5. REMICADE [Suspect]
     Route: 042
  6. REMICADE [Suspect]
     Indication: CROHN'S DISEASE
     Route: 042
  7. DILANTIN [Concomitant]
  8. PREVACID [Concomitant]
  9. LOTREL [Concomitant]
     Dosage: DOSE JUST INCREASED
  10. PREDNISONE [Concomitant]
  11. CORTISONE ACETATE TAB [Concomitant]
     Dosage: 3-5 MONTHS
     Route: 050

REACTIONS (4)
  - AMNESIA [None]
  - DRUG INEFFECTIVE [None]
  - HYPOAESTHESIA [None]
  - TRANSIENT ISCHAEMIC ATTACK [None]
